FAERS Safety Report 5491353-4 (Version None)
Quarter: 2007Q4

REPORT INFORMATION
  Report Type: 
  Country: None (occurrence: None)
  Receive Date: 20071017
  Receipt Date: 20071001
  Transmission Date: 20080405
  Serious: Yes (Other)
  Sender: FDA-Public Use
  Company Number: 8027164

PATIENT
  Age: 77 Year
  Sex: Male
  Weight: 70 kg

DRUGS (5)
  1. KEPPRA [Suspect]
     Indication: EPILEPSY
     Dosage: 250 MG 3/D PO
     Route: 048
     Dates: start: 20070101
  2. TRILEPTAL [Concomitant]
  3. PREVISCAN /00261401/ [Concomitant]
  4. TANAKAN /01003103/ [Concomitant]
  5. STABLON /00956301/ [Concomitant]

REACTIONS (3)
  - DYSPEPSIA [None]
  - ORAL INTAKE REDUCED [None]
  - THROMBOCYTOPENIA [None]
